FAERS Safety Report 6527575-0 (Version None)
Quarter: 2010Q1

REPORT INFORMATION
  Report Type: 
  Country: None (occurrence: None)
  Receive Date: 20100105
  Receipt Date: 20091230
  Transmission Date: 20100710
  Serious: Yes (Hospitalization, Other)
  Sender: FDA-Public Use
  Company Number: US-B.I. PHARMACEUTICALS,INC./RIDGEFIELD-2009-BP-13032BP

PATIENT
  Sex: Male
  Weight: 60.8 kg

DRUGS (17)
  1. APTIVUS/RITONAVIR CAPSULES [Suspect]
     Indication: ANTIRETROVIRAL THERAPY
     Dosage: 1000 MG
     Route: 048
     Dates: start: 20060309, end: 20090927
  2. NORVIR [Suspect]
     Indication: ANTIRETROVIRAL THERAPY
     Route: 048
  3. NORVIR [Suspect]
     Dosage: 400 MG
     Route: 048
     Dates: start: 20060309, end: 20090927
  4. MARAVIROC [Suspect]
     Indication: HIV INFECTION
     Route: 048
  5. MARAVIROC [Suspect]
     Dosage: 600 MG
     Route: 048
     Dates: start: 20070801, end: 20090927
  6. RETROVIR [Concomitant]
     Indication: ANTIRETROVIRAL THERAPY
     Dosage: 600 MG
     Route: 048
     Dates: start: 20060309, end: 20090927
  7. TRUVADA [Concomitant]
     Indication: ANTIRETROVIRAL THERAPY
     Route: 048
  8. TRUVADA [Concomitant]
     Route: 048
     Dates: start: 20050101, end: 20090927
  9. ISENTRESS [Concomitant]
     Indication: ANTIRETROVIRAL THERAPY
     Route: 048
  10. ISENTRESS [Concomitant]
     Dosage: 800 MG
     Route: 048
     Dates: start: 20080401, end: 20090927
  11. BACTRIM DS [Concomitant]
     Indication: PROPHYLAXIS
  12. PRILOSEC [Concomitant]
  13. AZELASTINE HYDROCHLORIDE (AZELASTINE HYDROCHLORIDE) [Concomitant]
  14. ATIVAN [Concomitant]
  15. PAXIL [Concomitant]
  16. TRICOR [Concomitant]
     Dates: end: 20090924
  17. ZETIA [Concomitant]
     Dates: end: 20090924

REACTIONS (3)
  - ABDOMINAL PAIN [None]
  - BLOOD CREATININE INCREASED [None]
  - TRANSAMINASES INCREASED [None]
